FAERS Safety Report 7455017-X (Version None)
Quarter: 2011Q2

REPORT INFORMATION
  Report Type: 
  Country: None (occurrence: None)
  Receive Date: 20110503
  Receipt Date: 20110427
  Transmission Date: 20111010
  Serious: Yes (Life-Threatening)
  Sender: FDA-Public Use
  Company Number: JP-PFIZER INC-2011093698

PATIENT

DRUGS (1)
  1. ANCARON [Suspect]
     Indication: VENTRICULAR TACHYCARDIA
     Dosage: 200 MG, DAILY
     Route: 048

REACTIONS (1)
  - BLOOD POTASSIUM INCREASED [None]
